FAERS Safety Report 6510756-X (Version None)
Quarter: 2009Q4

REPORT INFORMATION
  Report Type: 
  Country: None (occurrence: None)
  Receive Date: 20091222
  Receipt Date: 20091216
  Transmission Date: 20100525
  Serious: Yes (Hospitalization)
  Sender: FDA-Public Use
  Company Number: FR-ABBOTT-09P-056-0614851-00

PATIENT
  Age: 45 Year
  Sex: Male

DRUGS (2)
  1. KALETRA [Suspect]
     Indication: HIV INFECTION
     Dosage: 200MG/50MG
     Route: 048
     Dates: start: 20061030
  2. COMBIVIR [Suspect]
     Indication: HIV INFECTION
     Dosage: 150MG/300MG
     Route: 048
     Dates: start: 20040616

REACTIONS (1)
  - ANGINA UNSTABLE [None]
